FAERS Safety Report 9772669 (Version 2)
Quarter: 2014Q1

REPORT INFORMATION
  Report Type: Spontaneous
  Country: US (occurrence: US)
  Receive Date: 20131219
  Receipt Date: 20140116
  Transmission Date: 20141002
  Serious: Yes (Other)
  Sender: FDA-Public Use
  Company Number: US-PFIZER INC-2013360684

PATIENT
  Age: 63 Year
  Sex: Male

DRUGS (8)
  1. INLYTA [Suspect]
     Indication: METASTATIC RENAL CELL CARCINOMA
     Dosage: 5 MG, BID
     Route: 048
     Dates: start: 201208
  2. INLYTA [Suspect]
     Dosage: 2 MG, 2X/DAY
  3. INLYTA [Suspect]
     Dosage: 2 MG, 2X/DAY
     Route: 048
     Dates: start: 201207
  4. DENOSUMAB [Concomitant]
     Indication: METASTASES TO BONE
     Dosage: 120 MG, UNK
  5. LASIX [Concomitant]
     Indication: OEDEMA PERIPHERAL
     Dosage: 20/ 40, UNK
  6. HYDRALAZINE [Concomitant]
     Indication: HYPERTENSION
     Dosage: UNK
  7. METOPROLOL [Concomitant]
     Indication: HYPERTENSION
     Dosage: UNK
  8. NORVASC [Concomitant]
     Indication: HYPERTENSION
     Dosage: UNK

REACTIONS (2)
  - Renal failure chronic [Not Recovered/Not Resolved]
  - Blood pressure increased [Unknown]
